FAERS Safety Report 22210623 (Version 2)
Quarter: 2023Q2

REPORT INFORMATION
  Report Type: Report from Study
  Country: BR (occurrence: BR)
  Receive Date: 20230414
  Receipt Date: 20230420
  Transmission Date: 20230722
  Serious: Yes (Other)
  Sender: FDA-Public Use
  Company Number: BR-NOVOPROD-1050088

PATIENT
  Age: 53 Year
  Sex: Male
  Weight: 84 kg

DRUGS (1)
  1. VICTOZA [Suspect]
     Active Substance: LIRAGLUTIDE
     Indication: Blood glucose abnormal
     Dosage: 0.6 MG, QOD ((PERFORMING APPLICATIONS ON ALTERNATE DAYS)
     Dates: start: 20230325, end: 20230330

REACTIONS (3)
  - Hyperglycaemia [Not Recovered/Not Resolved]
  - Device leakage [Unknown]
  - Inappropriate schedule of product administration [Unknown]

NARRATIVE: CASE EVENT DATE: 20230405
